FAERS Safety Report 6307982-1 (Version None)
Quarter: 2009Q3

REPORT INFORMATION
  Report Type: 
  Country: None (occurrence: None)
  Receive Date: 20090813
  Receipt Date: 20090810
  Transmission Date: 20100115
  Serious: Yes (Other)
  Sender: FDA-Public Use
  Company Number: US-ELI_LILLY_AND_COMPANY-US200908002187

PATIENT
  Sex: Male

DRUGS (5)
  1. HUMULIN N [Suspect]
     Dates: start: 19810101
  2. HUMULIN 70/30 [Suspect]
  3. AVAPRO [Concomitant]
  4. CLONIDINE [Concomitant]
  5. ATENOLOL [Concomitant]

REACTIONS (2)
  - DRUG INEFFECTIVE [None]
  - RENAL DISORDER [None]
